FAERS Safety Report 24872264 (Version 1)
Quarter: 2025Q1

REPORT INFORMATION
  Report Type: Spontaneous
  Country: JP (occurrence: JP)
  Receive Date: 20250122
  Receipt Date: 20250122
  Transmission Date: 20250408
  Serious: Yes (Death, Other)
  Sender: AMGEN
  Company Number: JP-KYOWAKIRIN-2024KK027654

PATIENT
  Age: 10 Decade
  Sex: Female

DRUGS (1)
  1. ROMIPLOSTIM [Suspect]
     Active Substance: ROMIPLOSTIM
     Indication: Product used for unknown indication
     Route: 058
     Dates: start: 202411

REACTIONS (3)
  - Sepsis [Fatal]
  - Nephropathy [Fatal]
  - Off label use [Unknown]

NARRATIVE: CASE EVENT DATE: 20250101
